FAERS Safety Report 8561233-6 (Version None)
Quarter: 2012Q3

REPORT INFORMATION
  Report Type: 
  Country: None (occurrence: None)
  Receive Date: 20120802
  Receipt Date: 20120720
  Transmission Date: 20120928
  Serious: Yes (Hospitalization)
  Sender: FDA-Public Use
  Company Number: US-JNJFOC-20120713398

PATIENT
  Sex: Female

DRUGS (3)
  1. REMICADE [Concomitant]
     Indication: RHEUMATOID ARTHRITIS
     Route: 065
  2. BENADRYL [Suspect]
     Indication: PRURITUS
     Route: 048
  3. AN UNKNOWN MEDICATION [Concomitant]
     Indication: PREMEDICATION
     Route: 065

REACTIONS (5)
  - ANGIOEDEMA [None]
  - PRURITUS [None]
  - PARAESTHESIA ORAL [None]
  - DRUG INEFFECTIVE FOR UNAPPROVED INDICATION [None]
  - DYSPEPSIA [None]
